FAERS Safety Report 9712623 (Version 1)
Quarter: 2013Q4

REPORT INFORMATION
  Report Type: Spontaneous
  Country: US (occurrence: US)
  Receive Date: 20131126
  Receipt Date: 20131126
  Transmission Date: 20140711
  Serious: No
  Sender: FDA-Public Use
  Company Number: US-BRISTOL-MYERS SQUIBB COMPANY-19208065

PATIENT
  Age: 68 Year
  Sex: Female
  Weight: 90.7 kg

DRUGS (5)
  1. BYDUREON 2MG SUSPENSION [Suspect]
     Indication: TYPE 2 DIABETES MELLITUS
     Dates: start: 20130805
  2. GLIPIZIDE [Concomitant]
  3. METFORMIN [Concomitant]
  4. QUINAPRIL [Concomitant]
  5. DIOVAN [Concomitant]

REACTIONS (1)
  - Injection site nodule [Unknown]
